FAERS Safety Report 10904505 (Version 1)
Quarter: 2015Q1

REPORT INFORMATION
  Report Type: Spontaneous
  Country: US (occurrence: US)
  Receive Date: 20150311
  Receipt Date: 20150311
  Transmission Date: 20150721
  Serious: Yes (Other)
  Sender: FDA-Public Use
  Company Number: US-TEVA-513804USA

PATIENT
  Age: 60 Year
  Sex: Female

DRUGS (3)
  1. COPAXONE [Suspect]
     Active Substance: GLATIRAMER ACETATE
     Indication: MULTIPLE SCLEROSIS
     Route: 058
     Dates: start: 20140406, end: 20140924
  2. CARBAMAZEPINE. [Suspect]
     Active Substance: CARBAMAZEPINE
     Route: 065
     Dates: start: 201409
  3. STEROID [Suspect]
     Active Substance: UNSPECIFIED INGREDIENT
     Indication: TRIGEMINAL NEURALGIA
     Route: 042

REACTIONS (6)
  - Erythema [Unknown]
  - Urticaria [Unknown]
  - Hypoaesthesia oral [Unknown]
  - Hypersensitivity [Unknown]
  - Acne [Unknown]
  - Swollen tongue [Unknown]

NARRATIVE: CASE EVENT DATE: 20140929
